FAERS Safety Report 7249202-X (Version None)
Quarter: 2011Q1

REPORT INFORMATION
  Report Type: 
  Country: None (occurrence: None)
  Receive Date: 20110128
  Receipt Date: 20101119
  Transmission Date: 20110831
  Serious: Yes (Other)
  Sender: FDA-Public Use
  Company Number: US-BAYER-201031772NA

PATIENT
  Sex: Female
  Weight: 86 kg

DRUGS (5)
  1. YASMIN [Suspect]
     Indication: PRODUCT USED FOR UNKNOWN INDICATION
     Dosage: UNK UNK, UNK
     Route: 065
     Dates: start: 20041201, end: 20070101
  2. YASMIN [Suspect]
     Dosage: UNK
     Dates: start: 20070101, end: 20071101
  3. POTASSIUM [Concomitant]
  4. RESPIRATORY SYSTEM [Concomitant]
  5. NSAID'S [Concomitant]

REACTIONS (6)
  - DIARRHOEA [None]
  - GALLBLADDER INJURY [None]
  - HEADACHE [None]
  - BILIARY DYSKINESIA [None]
  - ABDOMINAL PAIN [None]
  - FATIGUE [None]
